FAERS Safety Report 6212885-7 (Version None)
Quarter: 2009Q2

REPORT INFORMATION
  Report Type: 
  Country: None (occurrence: None)
  Receive Date: 20090601
  Receipt Date: 20090515
  Transmission Date: 20091009
  Serious: Yes (Other)
  Sender: FDA-Public Use
  Company Number: 2009PL000223

PATIENT
  Age: 60 Year
  Sex: Female

DRUGS (7)
  1. LOTRONEX [Suspect]
     Indication: DIARRHOEA
     Dosage: 1 MG;QD;PO
     Route: 048
     Dates: start: 20030601, end: 20090501
  2. LOTRONEX [Suspect]
     Indication: INFLAMMATORY BOWEL DISEASE
     Dosage: 1 MG;QD;PO
     Route: 048
     Dates: start: 20030601, end: 20090501
  3. HYDROCHLOROTHIAZIDE [Concomitant]
  4. ZIAC [Concomitant]
  5. PREMARIN [Concomitant]
  6. PRILOSEC [Concomitant]
  7. IMODIUM [Concomitant]

REACTIONS (1)
  - COLITIS ISCHAEMIC [None]
